FAERS Safety Report 13569985 (Version 5)
Quarter: 2018Q3

REPORT INFORMATION
  Report Type: Report from Study
  Country: US (occurrence: US)
  Receive Date: 20170522
  Receipt Date: 20180905
  Transmission Date: 20181010
  Serious: Yes (Death, Hospitalization)
  Sender: FDA-Public Use
  Company Number: US-ACTELION-A-US2016-144531

PATIENT
  Age: 36 Year
  Sex: Female
  Weight: 173.7 kg

DRUGS (4)
  1. SILDENAFIL CITRATE. [Concomitant]
     Active Substance: SILDENAFIL CITRATE
     Dosage: 20 MG, TID
     Dates: end: 20180822
  2. WARFARIN [Concomitant]
     Active Substance: WARFARIN
  3. OPSUMIT [Suspect]
     Active Substance: MACITENTAN
     Indication: PULMONARY ARTERIAL HYPERTENSION
     Dosage: 10 MG, QD
     Route: 048
  4. REMODULIN [Suspect]
     Active Substance: TREPROSTINIL
     Indication: PRODUCT USED FOR UNKNOWN INDICATION
     Dosage: 119 NG/KG, PER MIN
     Route: 042
     Dates: end: 20180822

REACTIONS (20)
  - Fatigue [Unknown]
  - Dyspnoea [Unknown]
  - Heart rate increased [Unknown]
  - Vision blurred [Unknown]
  - Pulmonary arterial hypertension [Unknown]
  - Condition aggravated [Unknown]
  - Syncope [Unknown]
  - Chest pain [Unknown]
  - Death [Fatal]
  - Device related infection [Unknown]
  - Cough [Unknown]
  - Diarrhoea [Unknown]
  - Loss of consciousness [Unknown]
  - Irritability [Unknown]
  - Dizziness [Unknown]
  - Oxygen saturation decreased [Not Recovered/Not Resolved]
  - Palpitations [Unknown]
  - Fluid retention [Not Recovered/Not Resolved]
  - Headache [Recovered/Resolved]
  - Catheter site infection [Unknown]

NARRATIVE: CASE EVENT DATE: 20170506
